FAERS Safety Report 17451340 (Version 3)
Quarter: 2020Q2

REPORT INFORMATION
  Report Type: Spontaneous
  Country: US (occurrence: US)
  Receive Date: 20200224
  Receipt Date: 20200504
  Transmission Date: 20200713
  Serious: No
  Sender: FDA-Public Use
  Company Number: US-PFIZER INC-2020074974

PATIENT
  Age: 60 Year
  Sex: Female

DRUGS (2)
  1. XELJANZ XR [Suspect]
     Active Substance: TOFACITINIB CITRATE
     Indication: RHEUMATOID ARTHRITIS
     Dosage: 11 MG, DAILY
     Route: 048
     Dates: start: 202001, end: 202001
  2. XELJANZ XR [Suspect]
     Active Substance: TOFACITINIB CITRATE
     Dosage: 11 MG, 1X/DAY
     Route: 048
     Dates: start: 20200120

REACTIONS (9)
  - Cough [Unknown]
  - Finger deformity [Not Recovered/Not Resolved]
  - Bronchitis [Unknown]
  - Upper respiratory tract infection [Unknown]
  - Feeling cold [Unknown]
  - Dyspnoea [Unknown]
  - Drug ineffective [Unknown]
  - Nasopharyngitis [Unknown]
  - Chills [Unknown]

NARRATIVE: CASE EVENT DATE: 2020
